FAERS Safety Report 9704468 (Version 1)
Quarter: 2013Q4

REPORT INFORMATION
  Report Type: Spontaneous
  Country: ES (occurrence: ES)
  Receive Date: 20131122
  Receipt Date: 20131122
  Transmission Date: 20140711
  Serious: Yes (Death, Life-Threatening, Hospitalization)
  Sender: FDA-Public Use
  Company Number: ES-PFIZER INC-2004038284

PATIENT
  Age: 80 Year
  Sex: Male

DRUGS (8)
  1. SERTRALINE HYDROCHLORIDE [Suspect]
     Dosage: 50 MG, 1X/DAY
     Route: 048
     Dates: start: 20040210
  2. AMLODIPINE BESILATE [Suspect]
     Dates: start: 20040207, end: 20040223
  3. CEFEPIME [Suspect]
     Indication: BRONCHITIS CHRONIC
     Dates: start: 20040210, end: 20040218
  4. ACETAMINOPHEN [Suspect]
     Dates: start: 20040207, end: 20040223
  5. CLEXANE [Suspect]
     Indication: PHLEBITIS
     Dosage: 40 MG, UNK
     Route: 058
     Dates: start: 20040207, end: 20040211
  6. CLEXANE [Suspect]
     Indication: DEEP VEIN THROMBOSIS
  7. OMEPRAZOLE SODIUM [Suspect]
     Dosage: UNK
     Dates: start: 20040207, end: 20040218
  8. CEFTAZIDIME [Concomitant]
     Indication: BRONCHITIS CHRONIC
     Dosage: UNK
     Dates: start: 20040207, end: 20040210

REACTIONS (3)
  - Acute myocardial infarction [Fatal]
  - Thrombocytopenia [Unknown]
  - Marrow hyperplasia [Unknown]
